FAERS Safety Report 10221064 (Version 1)
Quarter: 2014Q2

REPORT INFORMATION
  Report Type: Spontaneous
  Country: US (occurrence: None)
  Receive Date: 20140605
  Receipt Date: 20140605
  Transmission Date: 20141212
  Serious: Yes (Hospitalization)
  Sender: FDA-Public Use
  Company Number: None

PATIENT
  Age: 82 Year
  Sex: Female
  Weight: 55.34 kg

DRUGS (7)
  1. RIVAROXABAN [Suspect]
     Indication: ATRIAL FIBRILLATION
     Dosage: 1 TAB QD ORAL
     Route: 048
     Dates: start: 20130416, end: 20131031
  2. AMIODARONE [Suspect]
     Indication: ATRIAL FIBRILLATION
     Route: 048
  3. AMIODARONE(PACERONE) [Concomitant]
  4. DORZOLAMIDE HCI-TIMOLOL(COSOPT OP) [Concomitant]
  5. ESOMEPRAZOLE(NEXIUM) [Concomitant]
  6. FERROUS SULFATE [Concomitant]
  7. XALATAN EYE DROPS [Concomitant]

REACTIONS (9)
  - Dizziness [None]
  - Asthenia [None]
  - Occult blood [None]
  - Duodenal vascular ectasia [None]
  - Diverticulum intestinal [None]
  - Telangiectasia [None]
  - Gastric disorder [None]
  - Haemorrhage [None]
  - Haemoglobin decreased [None]
